FAERS Safety Report 13293993 (Version 1)
Quarter: 2017Q1

REPORT INFORMATION
  Report Type: Spontaneous
  Country: US (occurrence: US)
  Receive Date: 20170303
  Receipt Date: 20170303
  Transmission Date: 20170428
  Serious: Yes (Death, Hospitalization)
  Sender: FDA-Public Use
  Company Number: US-UNITED THERAPEUTICS-UNT-2017-002181

PATIENT
  Age: 67 Year
  Sex: Female
  Weight: 44.81 kg

DRUGS (4)
  1. WARFARIN [Concomitant]
     Active Substance: WARFARIN
     Indication: PRODUCT USED FOR UNKNOWN INDICATION
  2. REMODULIN [Suspect]
     Active Substance: TREPROSTINIL
     Dosage: UNK UNK, CONTINUING
     Route: 041
     Dates: start: 20160915
  3. FLOLAN [Concomitant]
     Active Substance: EPOPROSTENOL SODIUM
     Indication: PRODUCT USED FOR UNKNOWN INDICATION
  4. REMODULIN [Suspect]
     Active Substance: TREPROSTINIL
     Indication: PULMONARY HYPERTENSION
     Dosage: 0.034 ?G/KG, CONTINUING
     Route: 041
     Dates: start: 20160907

REACTIONS (4)
  - Oedema [Unknown]
  - Death [Fatal]
  - Renal disorder [Unknown]
  - Malaise [Unknown]

NARRATIVE: CASE EVENT DATE: 201701
